FAERS Safety Report 12711655 (Version 1)
Quarter: 2016Q3

REPORT INFORMATION
  Report Type: Spontaneous
  Country: JP (occurrence: JP)
  Receive Date: 20160902
  Receipt Date: 20160902
  Transmission Date: 20161109
  Serious: Yes (Hospitalization, Other)
  Sender: FDA-Public Use
  Company Number: JP-BAYER-2016-167405

PATIENT
  Age: 34 Year
  Sex: Female
  Weight: 44.4 kg

DRUGS (14)
  1. RITODRINE [Suspect]
     Active Substance: RITODRINE
     Indication: THREATENED LABOUR
     Dosage: 83 ?G/MIN AND MG 1.6 G/H.
  2. PLATELETS [Concomitant]
     Active Substance: HUMAN PLATELET, ALLOGENIC
     Dosage: DAILY DOSE 10 DF
  3. RED CELLS MAP [Concomitant]
     Active Substance: HUMAN RED BLOOD CELL
     Dosage: DAILY DOSE 4 DF
  4. HEPARIN [Suspect]
     Active Substance: HEPARIN SODIUM
     Indication: BASILAR ARTERY STENOSIS
     Dosage: 10000 U, QD
  5. CLOPIDOGREL [Suspect]
     Active Substance: CLOPIDOGREL BISULFATE
     Indication: BASILAR ARTERY STENOSIS
     Dosage: 75 MG, QD
     Route: 048
  6. CLOPIDOGREL [Suspect]
     Active Substance: CLOPIDOGREL BISULFATE
     Indication: BRAIN STEM INFARCTION
  7. MAGNESIUM SULFATE. [Suspect]
     Active Substance: MAGNESIUM SULFATE
     Indication: THREATENED LABOUR
  8. CILOSTAZOL. [Concomitant]
     Active Substance: CILOSTAZOL
     Dosage: 200 MG, QD
  9. ACETYLSALICYLIC ACID({=100 MG) [Suspect]
     Active Substance: ASPIRIN
     Indication: CEREBELLAR INFARCTION
  10. ACETYLSALICYLIC ACID({=100 MG) [Suspect]
     Active Substance: ASPIRIN
     Indication: CEREBELLAR INFARCTION
     Dosage: 100 MG, QD
     Route: 048
  11. HEPARIN [Suspect]
     Active Substance: HEPARIN SODIUM
     Indication: BRAIN STEM INFARCTION
  12. RITODRINE [Suspect]
     Active Substance: RITODRINE
     Indication: THREATENED LABOUR
     Dosage: INCREASED DOSE
  13. RITODRINE [Suspect]
     Active Substance: RITODRINE
     Indication: THREATENED LABOUR
     Dosage: 133 ?G/MIN
  14. RITODRINE [Suspect]
     Active Substance: RITODRINE
     Indication: THREATENED LABOUR

REACTIONS (10)
  - Brain stem infarction [None]
  - Drug administration error [None]
  - Stevens-Johnson syndrome [None]
  - Premature delivery [None]
  - Basilar artery stenosis [None]
  - Pulmonary alveolar haemorrhage [None]
  - Labelled drug-drug interaction medication error [None]
  - Maternal exposure during pregnancy [Recovered/Resolved]
  - Threatened labour [Recovered/Resolved]
  - Contraindicated product administered [None]
